FAERS Safety Report 19245311 (Version 3)
Quarter: 2021Q3

REPORT INFORMATION
  Report Type: Spontaneous
  Country: FR (occurrence: FR)
  Receive Date: 20210511
  Receipt Date: 20210805
  Transmission Date: 20211014
  Serious: Yes (Other)
  Sender: FDA-Public Use
  Company Number: FR-US-PROVELL PHARMACEUTICALS LLC-9236090

PATIENT
  Age: 64 Year
  Sex: Male

DRUGS (1)
  1. LEVOTHYROX [Suspect]
     Active Substance: LEVOTHYROXINE
     Indication: PRODUCT USED FOR UNKNOWN INDICATION
     Dosage: LEVOTHYROX 175 UG AND 1/2 TAB OF LEVOTHYROX 25 UG,
     Route: 048
     Dates: start: 2012

REACTIONS (5)
  - Blood thyroid stimulating hormone increased [Recovered/Resolved]
  - Suspected counterfeit product [Unknown]
  - Abdominal abscess [Unknown]
  - Fatigue [Not Recovered/Not Resolved]
  - Lipoma [Unknown]

NARRATIVE: CASE EVENT DATE: 2021
